FAERS Safety Report 4408413-9 (Version None)
Quarter: 2004Q3

REPORT INFORMATION
  Report Type: 
  Country: None (occurrence: None)
  Receive Date: 20040726
  Receipt Date: 20040726
  Transmission Date: 20050211
  Serious: Yes (Disabling)
  Sender: FDA-Public Use
  Company Number: None

PATIENT
  Age: 70 Year
  Sex: Female
  Weight: 62.5964 kg

DRUGS (3)
  1. LIPITOR [Suspect]
     Indication: BLOOD CHOLESTEROL INCREASED
     Dosage: ONCE PER DAY
     Dates: start: 19991201, end: 20021201
  2. MULTI-VITAMIN [Concomitant]
  3. VITAMIN E [Concomitant]

REACTIONS (7)
  - AMNESIA [None]
  - ARTHROPATHY [None]
  - DRUG TOXICITY [None]
  - DYSARTHRIA [None]
  - DYSPHAGIA [None]
  - HYPERTONIA [None]
  - SPEECH DISORDER [None]
